FAERS Safety Report 11207391 (Version 1)
Quarter: 2015Q2

REPORT INFORMATION
  Report Type: Report from Study
  Country: US (occurrence: US)
  Receive Date: 20150622
  Receipt Date: 20150622
  Transmission Date: 20150821
  Serious: No
  Sender: FDA-Public Use
  Company Number: US-ABBVIE-15P-163-1379972-00

PATIENT
  Age: 64 Year
  Sex: Male
  Weight: 85.35 kg

DRUGS (1)
  1. VIEKIRA PAK [Suspect]
     Active Substance: DASABUVIR\OMBITASVIR\PARITAPREVIR\RITONAVIR
     Indication: CHRONIC HEPATITIS C
     Dosage: 2 PINK COLORED TABS DAILY (AM) + 1 BEIGE COLORED TAB TWICE DAILY (AM + PM) WITH FOOD
     Route: 048
     Dates: start: 20150330, end: 20150409

REACTIONS (3)
  - Blood bilirubin increased [Unknown]
  - Nausea [Unknown]
  - Dizziness [Unknown]

NARRATIVE: CASE EVENT DATE: 20150409
